FAERS Safety Report 9947996 (Version 2)
Quarter: 2014Q1

REPORT INFORMATION
  Report Type: Report from Study
  Country: US (occurrence: US)
  Receive Date: 20140303
  Receipt Date: 20140303
  Transmission Date: 20141002
  Serious: Yes (Hospitalization)
  Sender: FDA-Public Use
  Company Number: US-ABBVIE-12P-163-1002289-00

PATIENT
  Age: 70 Year
  Sex: Female

DRUGS (8)
  1. HUMIRA [Suspect]
     Indication: PSORIATIC ARTHROPATHY
     Dates: start: 20080418
  2. HUMIRA [Suspect]
     Dosage: WEEKLY
  3. UNKNOWN MEDICATION [Concomitant]
     Indication: FIBROMYALGIA
  4. GLUCOPHAGE GENERIC [Concomitant]
     Indication: PRODUCT USED FOR UNKNOWN INDICATION
     Dosage: TWO PILLS TWICE A DAY
  5. JANUVIA [Concomitant]
     Indication: DIABETES MELLITUS
     Dosage: ONE PILL ONCE DAILY
  6. HYDROCODONE [Concomitant]
     Indication: OSTEOPOROSIS
  7. HYDROCODONE [Concomitant]
     Indication: BACK PAIN
  8. HYDROCODONE [Concomitant]
     Indication: PAIN IN EXTREMITY

REACTIONS (5)
  - Pneumonia [Recovering/Resolving]
  - Expired drug administered [Unknown]
  - Bronchitis [Recovering/Resolving]
  - Back pain [Unknown]
  - Pain in extremity [Unknown]
